FAERS Safety Report 7851467-8 (Version None)
Quarter: 2011Q4

REPORT INFORMATION
  Report Type: 
  Country: None (occurrence: None)
  Receive Date: 20111024
  Receipt Date: 20111017
  Transmission Date: 20120403
  Serious: Yes (Other)
  Sender: FDA-Public Use
  Company Number: GB-ACCORD-011016

PATIENT
  Age: 63 Year
  Sex: Male
  Weight: 75 kg

DRUGS (3)
  1. OMEPRAZOLE [Concomitant]
  2. CLOPIDOGREL [Concomitant]
  3. SIMVASTATIN [Suspect]
     Indication: MYOCARDIAL INFARCTION
     Dosage: 40.00 MG/ORAL
     Route: 048
     Dates: start: 20070101, end: 20110830

REACTIONS (1)
  - RHINITIS [None]
